FAERS Safety Report 15982794 (Version 2)
Quarter: 2019Q1

REPORT INFORMATION
  Report Type: Report from Study
  Country: CO (occurrence: CO)
  Receive Date: 20190219
  Receipt Date: 20190312
  Transmission Date: 20190418
  Serious: Yes (Death, Hospitalization, Other)
  Sender: FDA-Public Use
  Company Number: CO-INCYTE CORPORATION-2018IN011791

PATIENT

DRUGS (2)
  1. JAKAVI [Suspect]
     Active Substance: RUXOLITINIB
     Dosage: 15 MG, QD (ONCE A DAY)
     Route: 048
     Dates: end: 20190204
  2. JAKAVI [Suspect]
     Active Substance: RUXOLITINIB
     Indication: MYELOFIBROSIS
     Dosage: 5 MG, QD
     Route: 048
     Dates: start: 2016

REACTIONS (4)
  - Myelofibrosis [Fatal]
  - Inappropriate schedule of product administration [Unknown]
  - White blood cell count increased [Not Recovered/Not Resolved]
  - Platelet count decreased [Fatal]

NARRATIVE: CASE EVENT DATE: 20190212
